FAERS Safety Report 11980970 (Version 2)
Quarter: 2016Q2

REPORT INFORMATION
  Report Type: Report from Study
  Country: DE (occurrence: DE)
  Receive Date: 20160129
  Receipt Date: 20160509
  Transmission Date: 20160815
  Serious: Yes (Life-Threatening, Hospitalization, Other)
  Sender: FDA-Public Use
  Company Number: DE-ABBVIE-16K-062-1538101-00

PATIENT
  Age: 36 Year
  Sex: Female

DRUGS (6)
  1. SEVREDOL [Concomitant]
     Active Substance: MORPHINE
     Indication: PRODUCT USED FOR UNKNOWN INDICATION
  2. VITAMIN B6 [Concomitant]
     Active Substance: PYRIDOXINE HYDROCHLORIDE
     Indication: PRODUCT USED FOR UNKNOWN INDICATION
  3. HUMIRA [Suspect]
     Active Substance: ADALIMUMAB
     Indication: CROHN^S DISEASE
     Route: 058
     Dates: start: 20100701
  4. PANTOPRAZOLE [Concomitant]
     Active Substance: PANTOPRAZOLE SODIUM
     Indication: PRODUCT USED FOR UNKNOWN INDICATION
  5. VITAMIN B12 [Concomitant]
     Active Substance: CYANOCOBALAMIN
     Indication: PRODUCT USED FOR UNKNOWN INDICATION
  6. FOLIC ACID. [Concomitant]
     Active Substance: FOLIC ACID
     Indication: PRODUCT USED FOR UNKNOWN INDICATION

REACTIONS (12)
  - Endocrine ophthalmopathy [Recovering/Resolving]
  - Sensation of foreign body [Recovering/Resolving]
  - Swelling face [Recovering/Resolving]
  - Enteritis [Recovering/Resolving]
  - Pain in extremity [Recovering/Resolving]
  - Carotid artery stenosis [Recovering/Resolving]
  - Local swelling [Recovering/Resolving]
  - Venous thrombosis [Recovering/Resolving]
  - Eye swelling [Recovering/Resolving]
  - Lymphostasis [Recovering/Resolving]
  - Carotid artery thrombosis [Recovering/Resolving]
  - Device dislocation [Unknown]

NARRATIVE: CASE EVENT DATE: 201512
